FAERS Safety Report 7457176-1 (Version None)
Quarter: 2011Q2

REPORT INFORMATION
  Report Type: 
  Country: None (occurrence: None)
  Receive Date: 20110502
  Receipt Date: 20110502
  Transmission Date: 20111010
  Serious: Yes (Life-Threatening, Hospitalization)
  Sender: FDA-Public Use
  Company Number: None

PATIENT
  Age: 53 Year
  Sex: Male
  Weight: 78.0187 kg

DRUGS (3)
  1. PRINIVIL [Concomitant]
  2. ZESTRIL [Concomitant]
  3. LISINOPRIL [Suspect]
     Indication: BLOOD PRESSURE
     Dosage: 1 TAB DAILY 1
     Dates: start: 20110303, end: 20110303

REACTIONS (1)
  - HOSPITALISATION [None]
